FAERS Safety Report 4677275-7 (Version None)
Quarter: 2005Q2

REPORT INFORMATION
  Report Type: 
  Country: None (occurrence: None)
  Receive Date: 20050527
  Receipt Date: 20050527
  Transmission Date: 20051028
  Serious: Yes (Other)
  Sender: FDA-Public Use
  Company Number: None

PATIENT
  Age: 39 Year
  Sex: Female
  Weight: 76.2043 kg

DRUGS (3)
  1. TAMOXIFEN 20 MG ASTRA ZENECA [Suspect]
     Indication: NEOPLASM PROPHYLAXIS
     Dosage: 1 PO DQ
     Route: 048
     Dates: start: 20050104, end: 20050519
  2. PLACEBO [Suspect]
  3. WELLBUTRIN [Concomitant]

REACTIONS (2)
  - DRUG EXPOSURE DURING PREGNANCY [None]
  - UNINTENDED PREGNANCY [None]
